FAERS Safety Report 4792428-5 (Version None)
Quarter: 2005Q4

REPORT INFORMATION
  Report Type: 
  Country: None (occurrence: None)
  Receive Date: 20051010
  Receipt Date: 20041020
  Transmission Date: 20060501
  Serious: No
  Sender: FDA-Public Use
  Company Number: US-GLAXOSMITHKLINE-A0530652A

PATIENT
  Age: 84 Year
  Sex: Male

DRUGS (5)
  1. LANOXIN [Suspect]
     Indication: CARDIAC FAILURE
     Dosage: .125MG PER DAY
     Route: 048
  2. TORSEMIDE [Concomitant]
  3. AVAPRO [Concomitant]
  4. SPIRONOLACTONE [Concomitant]
  5. PROSCAR [Concomitant]

REACTIONS (1)
  - VISION BLURRED [None]
